FAERS Safety Report 10701184 (Version 1)
Quarter: 2015Q1

REPORT INFORMATION
  Report Type: Spontaneous
  Country: US (occurrence: US)
  Receive Date: 20150109
  Receipt Date: 20150109
  Transmission Date: 20150721
  Serious: No
  Sender: FDA-Public Use
  Company Number: US-BRISTOL-MYERS SQUIBB COMPANY-BMS-2014-001662

PATIENT
  Sex: Female

DRUGS (10)
  1. VALTREX [Concomitant]
     Active Substance: VALACYCLOVIR HYDROCHLORIDE
  2. COMPAZINE [Concomitant]
     Active Substance: PROCHLORPERAZINE MALEATE
     Indication: NAUSEA
  3. IXEMPRA [Suspect]
     Active Substance: IXABEPILONE
     Indication: BREAST CANCER
     Route: 065
  4. BENADRYL [Concomitant]
     Active Substance: DIPHENHYDRAMINE HYDROCHLORIDE
  5. CLARITIN [Concomitant]
     Active Substance: LORATADINE
  6. RESTORIL [Concomitant]
     Active Substance: TEMAZEPAM
  7. KLONOPIN [Concomitant]
     Active Substance: CLONAZEPAM
  8. XELODA [Concomitant]
     Active Substance: CAPECITABINE
  9. COUMADIN [Concomitant]
     Active Substance: WARFARIN SODIUM
  10. NEURONTIN [Concomitant]
     Active Substance: GABAPENTIN

REACTIONS (1)
  - Incorrect drug administration rate [Unknown]
